FAERS Safety Report 4603655-1 (Version None)
Quarter: 2005Q1

REPORT INFORMATION
  Report Type: 
  Country: None (occurrence: None)
  Receive Date: 20050308
  Receipt Date: 20050223
  Transmission Date: 20050727
  Serious: Yes (Hospitalization)
  Sender: FDA-Public Use
  Company Number: 2005033859

PATIENT
  Age: 46 Year
  Sex: Female

DRUGS (5)
  1. CELEBREX [Suspect]
     Indication: BACK PAIN
     Dosage: 200 MG (200 MG, 1 IN 1 D), ORAL
     Route: 048
     Dates: start: 20050122
  2. TAMOXIFEN CITRATE [Suspect]
     Indication: BREAST CANCER
     Dates: start: 20040914
  3. MORPHINE SULFATE [Concomitant]
  4. ATENOLOL [Concomitant]
  5. LERCANIDIPINE [Concomitant]

REACTIONS (5)
  - AORTIC ATHEROSCLEROSIS [None]
  - CAROTID ARTERY THROMBOSIS [None]
  - CEREBROVASCULAR ACCIDENT [None]
  - HEMIPLEGIA [None]
  - WEIGHT INCREASED [None]
